FAERS Safety Report 13005982 (Version 1)
Quarter: 2016Q4

REPORT INFORMATION
  Report Type: Report from Study
  Country: None (occurrence: IL)
  Receive Date: 20161207
  Receipt Date: 20161207
  Transmission Date: 20170207
  Serious: Yes (Hospitalization)
  Sender: FDA-Public Use
  Company Number: IL-ABBVIE-16K-082-1795960-00

PATIENT
  Age: 65 Year
  Sex: Female

DRUGS (1)
  1. HUMIRA [Suspect]
     Active Substance: ADALIMUMAB
     Indication: CROHN^S DISEASE
     Route: 058
     Dates: start: 20160529, end: 20160928

REACTIONS (5)
  - Abdominal rigidity [Unknown]
  - Liver disorder [Unknown]
  - Diarrhoea [Unknown]
  - Intestinal resection [Unknown]
  - Vomiting [Unknown]

NARRATIVE: CASE EVENT DATE: 201609
